FAERS Safety Report 6616557-6 (Version None)
Quarter: 2010Q1

REPORT INFORMATION
  Report Type: 
  Country: None (occurrence: None)
  Receive Date: 20100305
  Receipt Date: 20100223
  Transmission Date: 20100710
  Serious: Yes (Other)
  Sender: FDA-Public Use
  Company Number: DE-PFIZER INC-2010023581

PATIENT
  Age: 67 Year
  Sex: Male

DRUGS (1)
  1. TOVIAZ [Suspect]
     Dosage: 4 MG, UNK
     Route: 048
     Dates: start: 20090219

REACTIONS (4)
  - CONFUSIONAL STATE [None]
  - NAUSEA [None]
  - NERVOUS SYSTEM DISORDER [None]
  - URINARY INCONTINENCE [None]
